FAERS Safety Report 5965812-1 (Version None)
Quarter: 2008Q4

REPORT INFORMATION
  Report Type: 
  Country: None (occurrence: None)
  Receive Date: 20081125
  Receipt Date: 20081110
  Transmission Date: 20090506
  Serious: Yes (Death)
  Sender: FDA-Public Use
  Company Number: CO-WYE-H06439708

PATIENT
  Sex: Male

DRUGS (2)
  1. SIROLIMUS [Suspect]
     Indication: PROPHYLAXIS AGAINST TRANSPLANT REJECTION
     Dosage: 3 MG
     Route: 065
  2. CALCIUM [Concomitant]

REACTIONS (2)
  - RESPIRATORY ARREST [None]
  - VIRAL INFECTION [None]
